FAERS Safety Report 8108930-4 (Version None)
Quarter: 2012Q1

REPORT INFORMATION
  Report Type: 
  Country: None (occurrence: None)
  Receive Date: 20120202
  Receipt Date: 20120126
  Transmission Date: 20120608
  Serious: Yes (Hospitalization)
  Sender: FDA-Public Use
  Company Number: GB-GLAXOSMITHKLINE-B0777934A

PATIENT
  Sex: Male

DRUGS (3)
  1. PHENYTOIN [Concomitant]
  2. LAMICTAL [Suspect]
     Indication: EPILEPSY
     Dosage: 250MG TWICE PER DAY
     Route: 048
  3. VALPROATE SODIUM [Concomitant]

REACTIONS (4)
  - SEDATION [None]
  - BALANCE DISORDER [None]
  - TOXICITY TO VARIOUS AGENTS [None]
  - MOBILITY DECREASED [None]
